FAERS Safety Report 5761531-5 (Version None)
Quarter: 2008Q2

REPORT INFORMATION
  Report Type: 
  Country: None (occurrence: None)
  Receive Date: 20080606
  Receipt Date: 20080528
  Transmission Date: 20081010
  Serious: Yes (Hospitalization)
  Sender: FDA-Public Use
  Company Number: ES-AMGEN-UK280684

PATIENT
  Sex: Male

DRUGS (2)
  1. PANITUMUMAB [Suspect]
     Indication: SQUAMOUS CELL CARCINOMA
     Route: 042
     Dates: start: 20080424
  2. PANITUMUMAB - STUDY PROCEDURE [Suspect]

REACTIONS (3)
  - DYSPHAGIA [None]
  - MUCOSAL INFLAMMATION [None]
  - STRIDOR [None]
